FAERS Safety Report 24891190 (Version 4)
Quarter: 2025Q1

REPORT INFORMATION
  Report Type: Report from Study
  Country: JP (occurrence: JP)
  Receive Date: 20250127
  Receipt Date: 20250227
  Transmission Date: 20250409
  Serious: Yes (Hospitalization)
  Sender: PFIZER
  Company Number: JP-PFIZER INC-PV202500010740

PATIENT
  Age: 1 Year
  Sex: Male
  Weight: 8.7 kg

DRUGS (11)
  1. SIROLIMUS [Suspect]
     Active Substance: SIROLIMUS
     Indication: Kaposiform haemangioendothelioma
     Dosage: 0.2 MG, DAILY
     Dates: start: 20240125
  2. SIROLIMUS [Suspect]
     Active Substance: SIROLIMUS
     Dosage: 0.4 MG, DAILY
     Dates: start: 20240411
  3. SIROLIMUS [Suspect]
     Active Substance: SIROLIMUS
     Dosage: 0.5 MG, DAILY
     Dates: start: 20240613
  4. SIROLIMUS [Suspect]
     Active Substance: SIROLIMUS
     Dosage: 0.4 MG, DAILY
     Route: 048
     Dates: start: 20240828, end: 20240918
  5. SIROLIMUS [Suspect]
     Active Substance: SIROLIMUS
     Dosage: 0.6 MG, DAILY
     Route: 048
     Dates: start: 20240919, end: 20241002
  6. SIROLIMUS [Suspect]
     Active Substance: SIROLIMUS
     Dosage: 1 MG, DAILY
     Route: 048
     Dates: start: 20241003, end: 20241106
  7. SIROLIMUS [Suspect]
     Active Substance: SIROLIMUS
     Dosage: 1.2 MG, DAILY
     Route: 048
     Dates: start: 20241107
  8. SULFAMETHOXAZOLE\TRIMETHOPRIM [Concomitant]
     Active Substance: SULFAMETHOXAZOLE\TRIMETHOPRIM
     Indication: Prophylaxis
     Route: 048
  9. PROPRANOLOL HYDROCHLORIDE [Concomitant]
     Active Substance: PROPRANOLOL HYDROCHLORIDE
     Indication: Kaposiform haemangioendothelioma
     Route: 048
     Dates: start: 20230722
  10. PROPRANOLOL HYDROCHLORIDE [Concomitant]
     Active Substance: PROPRANOLOL HYDROCHLORIDE
     Route: 048
  11. FERRIC PYROPHOSPHATE [Concomitant]
     Active Substance: FERRIC PYROPHOSPHATE
     Route: 048
     Dates: start: 20240401

REACTIONS (1)
  - Norovirus infection [Recovering/Resolving]

NARRATIVE: CASE EVENT DATE: 20241229
